FAERS Safety Report 7720518-3 (Version None)
Quarter: 2011Q3

REPORT INFORMATION
  Report Type: 
  Country: None (occurrence: None)
  Receive Date: 20110831
  Receipt Date: 20110826
  Transmission Date: 20111222
  Serious: Yes (Hospitalization)
  Sender: FDA-Public Use
  Company Number: FR-SANOFI-AVENTIS-2011SA055269

PATIENT
  Age: 63 Year
  Sex: Female

DRUGS (13)
  1. PROPOFOL [Concomitant]
     Dates: start: 20110726, end: 20110726
  2. ATARAX [Concomitant]
     Route: 065
  3. PRAVASTATIN [Concomitant]
     Route: 065
  4. PERINDOPRIL [Interacting]
     Route: 048
     Dates: start: 20080101, end: 20110802
  5. LANSOPRAZOLE [Concomitant]
     Route: 065
     Dates: start: 20100101
  6. METFORMIN HYDROCHLORIDE [Concomitant]
     Route: 065
     Dates: start: 20080101, end: 20110802
  7. MEDIATENSYL [Concomitant]
     Route: 065
  8. INDAPAMIDE [Suspect]
     Route: 048
     Dates: end: 20110802
  9. AMARYL [Concomitant]
     Dates: end: 20110802
  10. NEBIVOLOL HCL [Concomitant]
     Route: 065
  11. PLAVIX [Concomitant]
     Route: 065
  12. KLEAN-PREP /IRE/ [Interacting]
     Indication: COLONOSCOPY
     Route: 048
     Dates: start: 20110726, end: 20110726
  13. MIDAZOLAM HCL [Concomitant]
     Route: 065
     Dates: start: 20110726, end: 20110726

REACTIONS (7)
  - HYPOGLYCAEMIA [None]
  - WEIGHT INCREASED [None]
  - RENAL FAILURE ACUTE [None]
  - RENAL ARTERY STENOSIS [None]
  - DRUG INTERACTION [None]
  - DEHYDRATION [None]
  - BACTERIURIA [None]
